FAERS Safety Report 7945359-3 (Version None)
Quarter: 2011Q4

REPORT INFORMATION
  Report Type: 
  Country: None (occurrence: None)
  Receive Date: 20111129
  Receipt Date: 20110428
  Transmission Date: 20120403
  Serious: No
  Sender: FDA-Public Use
  Company Number: US-GLAXOSMITHKLINE-A0924936A

PATIENT
  Age: 49 Year
  Sex: Female

DRUGS (2)
  1. BUPROPION HYDROCHLORIDE [Suspect]
     Indication: DEPRESSION
     Dosage: 150MG TWICE PER DAY
     Route: 048
     Dates: start: 20110422, end: 20110427
  2. NO CONCURRENT MEDICATION [Concomitant]

REACTIONS (3)
  - NEGATIVISM [None]
  - CRYING [None]
  - PSYCHOMOTOR HYPERACTIVITY [None]
